FAERS Safety Report 17181528 (Version 2)
Quarter: 2020Q1

REPORT INFORMATION
  Report Type: Report from Study
  Country: US (occurrence: US)
  Receive Date: 20191219
  Receipt Date: 20200306
  Transmission Date: 20200409
  Serious: Yes (Other)
  Sender: FDA-Public Use
  Company Number: NVSC2019US074294

PATIENT
  Sex: Male

DRUGS (1)
  1. ENTRESTO [Suspect]
     Active Substance: SACUBITRIL\VALSARTAN
     Indication: CARDIAC FAILURE CHRONIC
     Dosage: UNK (49 MG ?SACUBITRIL/ 51MG VALSARTAN)
     Route: 065

REACTIONS (3)
  - Sciatica [Unknown]
  - Weight decreased [Unknown]
  - Hip fracture [Unknown]
